FAERS Safety Report 10333221 (Version 1)
Quarter: 2014Q3

REPORT INFORMATION
  Report Type: Spontaneous
  Country: DK (occurrence: DE)
  Receive Date: 20140722
  Receipt Date: 20140722
  Transmission Date: 20150326
  Serious: Yes (Other)
  Sender: FDA-Public Use
  Company Number: DE-FRI-1000069118

PATIENT
  Age: 28 Year
  Sex: Female
  Weight: 64 kg

DRUGS (4)
  1. EUTHYROX [Concomitant]
     Active Substance: LEVOTHYROXINE SODIUM
     Indication: AUTOIMMUNE THYROIDITIS
     Dosage: 88 MCG
     Route: 048
     Dates: start: 20121202, end: 20130908
  2. GYNVITAL [Concomitant]
     Indication: PROPHYLAXIS OF NEURAL TUBE DEFECT
     Dosage: 0.4 MG
     Route: 048
     Dates: start: 20121202
  3. ESCITALOPRAM [Suspect]
     Active Substance: ESCITALOPRAM OXALATE
     Dosage: 5 MG (VERY SLOW DOSE REDUCTION DURING PREGNANCY)
     Route: 048
     Dates: end: 20130908
  4. ESCITALOPRAM [Suspect]
     Active Substance: ESCITALOPRAM OXALATE
     Indication: ANXIETY DISORDER
     Dosage: 20 MG
     Route: 048
     Dates: start: 20121202

REACTIONS (2)
  - Caesarean section [Unknown]
  - Obstructed labour [Unknown]

NARRATIVE: CASE EVENT DATE: 20130908
